FAERS Safety Report 5888205-4 (Version None)
Quarter: 2008Q3

REPORT INFORMATION
  Report Type: 
  Country: None (occurrence: None)
  Receive Date: 20080916
  Receipt Date: 20080916
  Transmission Date: 20090109
  Serious: Yes (Death)
  Sender: FDA-Public Use
  Company Number: None

PATIENT
  Sex: Male

DRUGS (1)
  1. VENLAFAXINE HCL [Suspect]
     Indication: DEPRESSION
     Dosage: 150MG TWICE DAILY PO
     Route: 048
     Dates: start: 20080610, end: 20080720

REACTIONS (1)
  - THERAPEUTIC AGENT TOXICITY [None]
